FAERS Safety Report 9500746 (Version 1)
Quarter: 2013Q1

REPORT INFORMATION
  Report Type: Spontaneous
  Country: US (occurrence: None)
  Receive Date: 20130107
  Receipt Date: 20130107
  Transmission Date: 20140127
  Serious: No
  Sender: FDA-Public Use
  Company Number: PHEH2012US017295

PATIENT
  Sex: Female
  Weight: 48.1 kg

DRUGS (4)
  1. GILENYA (FTY) CAPSULE, 0.5MG [Suspect]
     Route: 048
  2. AMBIEN (ZOLPIDEM TARTRATE) TABLET [Concomitant]
  3. FAMPRIDINE (FAMPRIDINE) TABLET [Concomitant]
  4. VITAMIN D (ERGOCALCIFEROL) CAPSULE [Concomitant]

REACTIONS (2)
  - Hypertonic bladder [None]
  - Diarrhoea [None]
